FAERS Safety Report 8309496-6 (Version None)
Quarter: 2012Q2

REPORT INFORMATION
  Report Type: 
  Country: None (occurrence: None)
  Receive Date: 20120425
  Receipt Date: 20120419
  Transmission Date: 20120825
  Serious: No
  Sender: FDA-Public Use
  Company Number: US-PFIZER INC-2012099670

PATIENT
  Sex: Female

DRUGS (5)
  1. NASONEX [Suspect]
     Dosage: UNK
  2. TRICOR [Suspect]
     Dosage: UNK
  3. CELEBREX [Suspect]
     Dosage: UNK
  4. VIOXX [Suspect]
     Dosage: UNK
  5. WELCHOL [Suspect]
     Dosage: 625 MG, 2X/DAY
     Route: 048

REACTIONS (1)
  - DRUG HYPERSENSITIVITY [None]
